FAERS Safety Report 12914148 (Version 3)
Quarter: 2016Q4

REPORT INFORMATION
  Report Type: Spontaneous
  Country: FR (occurrence: FR)
  Receive Date: 20161106
  Receipt Date: 20161213
  Transmission Date: 20170207
  Serious: Yes (Hospitalization)
  Sender: FDA-Public Use
  Company Number: FR-ASTRAZENECA-2016SF14499

PATIENT
  Age: 15670 Day
  Sex: Female
  Weight: 78 kg

DRUGS (21)
  1. MOPRAL [Suspect]
     Active Substance: OMEPRAZOLE SODIUM
     Route: 048
     Dates: start: 20161001
  2. DOLIPRANE [Suspect]
     Active Substance: ACETAMINOPHEN
     Indication: ARTHRALGIA
     Dosage: 4.0G UNKNOWN
     Route: 048
     Dates: start: 20160930, end: 20160930
  3. TOPALGIC [Suspect]
     Active Substance: TRAMADOL
     Indication: ARTHRALGIA
     Route: 048
     Dates: start: 20160915
  4. TOPALGIC [Suspect]
     Active Substance: TRAMADOL
     Indication: ARTHRALGIA
     Dosage: 80.0MG UNKNOWN
     Route: 048
     Dates: start: 20160930, end: 20161011
  5. HEXATRIONE [Suspect]
     Active Substance: TRIAMCINOLONE HEXACETONIDE
     Indication: BACK PAIN
     Dosage: 2.0% UNKNOWN
     Route: 014
  6. VOLTARENE [Suspect]
     Active Substance: DICLOFENAC SODIUM
     Indication: ARTHRALGIA
     Dosage: 300.0MG UNKNOWN
     Route: 048
     Dates: start: 20160930, end: 20160930
  7. TOPALGIC [Suspect]
     Active Substance: TRAMADOL
     Indication: BACK PAIN
     Route: 048
     Dates: start: 20160915
  8. IBUPROFEN. [Suspect]
     Active Substance: IBUPROFEN
     Indication: ARTHRALGIA
     Route: 048
     Dates: start: 20160915
  9. IBUPROFEN. [Suspect]
     Active Substance: IBUPROFEN
     Indication: BACK PAIN
     Dosage: 800.0MG UNKNOWN
     Route: 048
     Dates: start: 20160930, end: 20160930
  10. VOLTARENE [Suspect]
     Active Substance: DICLOFENAC SODIUM
     Indication: BACK PAIN
     Route: 048
     Dates: start: 20160915
  11. DOLIPRANE [Suspect]
     Active Substance: ACETAMINOPHEN
     Indication: BACK PAIN
     Dosage: 1G THREE TO FOUR TIMES A DAY
     Route: 048
     Dates: start: 20160915
  12. DOLIPRANE [Suspect]
     Active Substance: ACETAMINOPHEN
     Indication: BACK PAIN
     Dosage: 4.0G UNKNOWN
     Route: 048
     Dates: start: 20160930, end: 20160930
  13. VALIUM [Suspect]
     Active Substance: DIAZEPAM
     Indication: BACK PAIN
     Route: 048
     Dates: start: 20161001
  14. IBUPROFEN. [Suspect]
     Active Substance: IBUPROFEN
     Indication: ARTHRALGIA
     Dosage: 800.0MG UNKNOWN
     Route: 048
     Dates: start: 20160930, end: 20160930
  15. VALIUM [Suspect]
     Active Substance: DIAZEPAM
     Indication: BACK PAIN
     Route: 042
     Dates: start: 20161001
  16. DOLIPRANE [Suspect]
     Active Substance: ACETAMINOPHEN
     Indication: ARTHRALGIA
     Dosage: 1G THREE TO FOUR TIMES A DAY
     Route: 048
     Dates: start: 20160915
  17. IBUPROFEN. [Suspect]
     Active Substance: IBUPROFEN
     Indication: BACK PAIN
     Route: 048
     Dates: start: 20160915
  18. VOLTARENE [Suspect]
     Active Substance: DICLOFENAC SODIUM
     Indication: ARTHRALGIA
     Route: 048
     Dates: start: 20160915
  19. TOPALGIC [Suspect]
     Active Substance: TRAMADOL
     Indication: BACK PAIN
     Dosage: 80.0MG UNKNOWN
     Route: 048
     Dates: start: 20160930, end: 20161011
  20. APRANAX [Suspect]
     Active Substance: NAPROXEN
     Indication: BACK PAIN
     Route: 048
     Dates: start: 20161001, end: 20161005
  21. VOLTARENE [Suspect]
     Active Substance: DICLOFENAC SODIUM
     Indication: BACK PAIN
     Dosage: 300.0MG UNKNOWN
     Route: 048
     Dates: start: 20160930, end: 20160930

REACTIONS (1)
  - Thrombocytopenic purpura [Not Recovered/Not Resolved]

NARRATIVE: CASE EVENT DATE: 20161003
